FAERS Safety Report 10358472 (Version 1)
Quarter: 2014Q3

REPORT INFORMATION
  Report Type: Spontaneous
  Country: GB (occurrence: None)
  Receive Date: 20140730
  Receipt Date: 20140730
  Transmission Date: 20150326
  Serious: Yes (Hospitalization)
  Sender: FDA-Public Use
  Company Number: IPC201407-000379

PATIENT
  Age: 39 Year
  Sex: Female

DRUGS (4)
  1. NOVORAPID (INSULIN) (INSULIN) [Concomitant]
  2. LEVEMIR (INSULIN) (INSULIN) [Concomitant]
  3. RUSCUS ACULEATUS [Suspect]
     Active Substance: RUSCUS ACULEATUS ROOT
  4. METFORMIN HYDROCHLORIDE (METFORMIN HYDROCHLORIDE) (METFORMIN HYDROCHLORIDE) [Suspect]
     Active Substance: METFORMIN HYDROCHLORIDE

REACTIONS (9)
  - Diarrhoea [None]
  - Dehydration [None]
  - Neutrophilia [None]
  - Sinus tachycardia [None]
  - Blood pressure diastolic increased [None]
  - Vomiting [None]
  - Hyperkalaemia [None]
  - Diabetic ketoacidosis [None]
  - Drug interaction [None]
